FAERS Safety Report 9552858 (Version 1)
Quarter: 2013Q3

REPORT INFORMATION
  Report Type: Spontaneous
  Country: US (occurrence: US)
  Receive Date: 20130925
  Receipt Date: 20130925
  Transmission Date: 20140515
  Serious: No
  Sender: FDA-Public Use
  Company Number: US-PURDUE-USA-2013-0102254

PATIENT
  Age: 71 Year
  Sex: Female

DRUGS (3)
  1. MORPHINE SULFATE EXTENDED-RELEASE TABLETS (RHODES 74-769) [Suspect]
     Indication: NEURALGIA
     Dosage: 60 MG, QID
     Route: 048
     Dates: start: 201304
  2. NEURONTIN [Concomitant]
     Indication: NEURALGIA
     Dosage: 800 MG, 5-6 TIMES A DAY
     Route: 048
  3. MEXITIL [Concomitant]
     Indication: OFF LABEL USE
     Dosage: 150 MG, 6 TIMES A DAY
     Route: 048

REACTIONS (1)
  - Drug ineffective [Not Recovered/Not Resolved]
